FAERS Safety Report 25021955 (Version 1)
Quarter: 2025Q1

REPORT INFORMATION
  Report Type: Spontaneous
  Country: US (occurrence: US)
  Receive Date: 20250228
  Receipt Date: 20250228
  Transmission Date: 20250409
  Serious: No
  Sender: KVK-TECH
  Company Number: US-KVK-TECH, INC-20241100175

PATIENT

DRUGS (1)
  1. ACETAMINOPHEN\OXYCODONE HYDROCHLORIDE [Suspect]
     Active Substance: ACETAMINOPHEN\OXYCODONE HYDROCHLORIDE
     Indication: Product used for unknown indication
     Route: 065
     Dates: start: 20241123, end: 20241123

REACTIONS (2)
  - Feeling hot [Unknown]
  - Anxiety [Unknown]

NARRATIVE: CASE EVENT DATE: 20241123
